FAERS Safety Report 8895982 (Version 3)
Quarter: 2012Q4

REPORT INFORMATION
  Report Type: 
  Country: NO (occurrence: NO)
  Receive Date: 20121108
  Receipt Date: 20121217
  Transmission Date: 20130627
  Serious: Yes (Hospitalization, Other)
  Sender: FDA-Public Use
  Company Number: NO-PFIZER INC-2012279277

PATIENT
  Age: 42 Year
  Sex: Female

DRUGS (3)
  1. NEURONTIN [Suspect]
     Indication: NERVE PAIN
     Dosage: 300 mg AM, 600 mg PM, 900 mg Evening
     Dates: start: 2012, end: 2012
  2. PARALGIN FORTE [Concomitant]
     Indication: POSTOPERATIVE PAIN
     Dosage: 1 tablet 3-4 times per day
     Dates: start: 20120821, end: 20121129
  3. PARACET [Concomitant]
     Indication: POSTOPERATIVE PAIN
     Dosage: 500 mg, 3-4 times per day
     Dates: start: 20120821, end: 20121129

REACTIONS (12)
  - Pneumonia herpes viral [Recovering/Resolving]
  - Withdrawal syndrome [Recovering/Resolving]
  - Varicella [Recovering/Resolving]
  - Myalgia [Recovering/Resolving]
  - Hypokalaemia [Unknown]
  - Drug ineffective [Recovering/Resolving]
  - Nausea [Recovering/Resolving]
  - Malaise [Recovering/Resolving]
  - Diarrhoea [Unknown]
  - Back pain [Not Recovered/Not Resolved]
  - Gamma-glutamyltransferase increased [Unknown]
  - Blood lactate dehydrogenase increased [Unknown]
